FAERS Safety Report 17489018 (Version 2)
Quarter: 2020Q1

REPORT INFORMATION
  Report Type: Spontaneous
  Country: JP (occurrence: JP)
  Receive Date: 20200303
  Receipt Date: 20200323
  Transmission Date: 20200409
  Serious: Yes (Hospitalization, Other)
  Sender: FDA-Public Use
  Company Number: JP-OTSUKA-2020_005972

PATIENT
  Age: 85 Year
  Sex: Male
  Weight: 55.3 kg

DRUGS (27)
  1. SAMSCA [Suspect]
     Active Substance: TOLVAPTAN
     Indication: ORTHOPNOEA
  2. WARFARIN [Concomitant]
     Active Substance: WARFARIN
     Indication: PRODUCT USED FOR UNKNOWN INDICATION
     Dosage: 1MG, FREQUENCY UNKOWN
     Route: 065
  3. SAMSCA [Suspect]
     Active Substance: TOLVAPTAN
     Dosage: 0.5 T, QD
     Route: 048
     Dates: start: 20190227
  4. LANIRAPID [Concomitant]
     Active Substance: METILDIGOXIN
     Indication: PRODUCT USED FOR UNKNOWN INDICATION
     Dosage: 0.1MG, FREQUENCY UNKNOWN
     Route: 065
  5. LASIX [Concomitant]
     Active Substance: FUROSEMIDE
     Dosage: 0.5 A, UNK
     Route: 048
     Dates: start: 20191107, end: 20191127
  6. LASIX [Concomitant]
     Active Substance: FUROSEMIDE
     Dosage: 30 MG, UNK
     Route: 048
     Dates: start: 20191128, end: 20200226
  7. ELIQUIS [Concomitant]
     Active Substance: APIXABAN
     Indication: PRODUCT USED FOR UNKNOWN INDICATION
     Dosage: 2 T, QD
     Route: 048
     Dates: end: 20200226
  8. LASIX [Concomitant]
     Active Substance: FUROSEMIDE
     Indication: PRODUCT USED FOR UNKNOWN INDICATION
     Dosage: 40 MG, UNK
     Route: 048
  9. FUROSEMIDE. [Concomitant]
     Active Substance: FUROSEMIDE
     Indication: PRODUCT USED FOR UNKNOWN INDICATION
     Dosage: 1 T, QD
     Route: 048
     Dates: start: 20190227, end: 20191127
  10. SELARA [Concomitant]
     Active Substance: EPLERENONE
     Indication: PRODUCT USED FOR UNKNOWN INDICATION
     Dosage: 1 T, QD
     Route: 048
     Dates: end: 20200226
  11. TAMSULOSIN [Concomitant]
     Active Substance: TAMSULOSIN
     Indication: PRODUCT USED FOR UNKNOWN INDICATION
     Dosage: 1 T, QD
     Route: 048
     Dates: end: 20200226
  12. LANIRAPID [Concomitant]
     Active Substance: METILDIGOXIN
     Dosage: 0.05 MG, QD
     Route: 048
     Dates: start: 20191223, end: 20200226
  13. NEXIUM [Concomitant]
     Active Substance: ESOMEPRAZOLE MAGNESIUM
     Indication: PRODUCT USED FOR UNKNOWN INDICATION
     Dosage: 1 C, QD
     Route: 048
     Dates: end: 20200226
  14. SAMSCA [Suspect]
     Active Substance: TOLVAPTAN
     Indication: CARDIAC FAILURE
     Dosage: 1.5 T, QD
     Route: 048
     Dates: start: 20191209, end: 20200226
  15. LASIX [Concomitant]
     Active Substance: FUROSEMIDE
     Dosage: 20MG, FREQUENCY UNKNOWN
     Route: 065
  16. FEBURIC [Concomitant]
     Active Substance: FEBUXOSTAT
     Indication: PRODUCT USED FOR UNKNOWN INDICATION
     Dosage: 2 T, QD
     Route: 048
     Dates: end: 20200226
  17. FUROSEMIDE. [Concomitant]
     Active Substance: FUROSEMIDE
     Dosage: 30 MG, QD
     Route: 048
     Dates: start: 20191128, end: 20200226
  18. FUROSEMIDE. [Concomitant]
     Active Substance: FUROSEMIDE
     Indication: PRODUCT USED FOR UNKNOWN INDICATION
     Dosage: 10 MG, QD
     Route: 042
     Dates: start: 20190226
  19. LASIX [Concomitant]
     Active Substance: FUROSEMIDE
     Dosage: 10 MG, UNK
     Route: 048
  20. BISOPROLOL [Concomitant]
     Active Substance: BISOPROLOL
     Indication: PRODUCT USED FOR UNKNOWN INDICATION
     Dosage: 0.625, FREQUENCY UNKNOWN
     Route: 065
  21. FEBURIC [Concomitant]
     Active Substance: FEBUXOSTAT
     Dosage: 20MG, FREQUENCY UNKNOWN
     Route: 065
  22. COVERSYL [Concomitant]
     Active Substance: PERINDOPRIL
     Indication: PRODUCT USED FOR UNKNOWN INDICATION
     Dosage: 4MG, FREQUENCY UNKNOWN
     Route: 065
  23. SAMSCA [Suspect]
     Active Substance: TOLVAPTAN
     Dosage: 1 T, QD
     Route: 048
     Dates: start: 20190228, end: 20191208
  24. SAMSCA [Suspect]
     Active Substance: TOLVAPTAN
     Indication: CARDIAC FAILURE CONGESTIVE
     Dosage: 11.25 MG, QD
     Route: 048
     Dates: start: 20191128, end: 20200226
  25. SAMSCA [Suspect]
     Active Substance: TOLVAPTAN
     Indication: OEDEMA PERIPHERAL
     Dosage: 7.5 MG, QD
     Route: 048
     Dates: start: 20191107, end: 20191127
  26. WARFARIN [Concomitant]
     Active Substance: WARFARIN
     Dosage: 2.5MG, FREQUENCY UNKOWN
     Route: 048
     Dates: start: 20190706, end: 20200226
  27. TANATRIL [Concomitant]
     Active Substance: IMIDAPRIL
     Indication: PRODUCT USED FOR UNKNOWN INDICATION
     Dosage: 1 T, QD
     Route: 048
     Dates: end: 20200226

REACTIONS (6)
  - Weight increased [Recovering/Resolving]
  - Underdose [Unknown]
  - Aortic valve stenosis [Unknown]
  - Hepatitis B [Unknown]
  - Jaundice [Unknown]
  - Drug-induced liver injury [Unknown]

NARRATIVE: CASE EVENT DATE: 20190706
